FAERS Safety Report 16093616 (Version 2)
Quarter: 2019Q1

REPORT INFORMATION
  Report Type: Report from Study
  Country: NL (occurrence: NL)
  Receive Date: 20190320
  Receipt Date: 20190328
  Transmission Date: 20190418
  Serious: Yes (Death, Hospitalization)
  Sender: FDA-Public Use
  Company Number: NL-TOLMAR, INC.-2019NL002694

PATIENT

DRUGS (2)
  1. ELIGARD [Suspect]
     Active Substance: LEUPROLIDE ACETATE
     Indication: PROSTATE CANCER
     Dosage: 45 MG, EVERY 6 MONTHS/ 1X/26 WEEKS
     Route: 058
     Dates: start: 20150407
  2. ELIGARD [Suspect]
     Active Substance: LEUPROLIDE ACETATE
     Dosage: 45 MG, EVERY 6 MONTHS/1X/26 WEEKS
     Route: 058
     Dates: start: 20180919

REACTIONS (2)
  - Coma [Not Recovered/Not Resolved]
  - Nervous system disorder [Fatal]

NARRATIVE: CASE EVENT DATE: 20190213
